FAERS Safety Report 8244117-2 (Version None)
Quarter: 2012Q1

REPORT INFORMATION
  Report Type: 
  Country: None (occurrence: None)
  Receive Date: 20120329
  Receipt Date: 20120323
  Transmission Date: 20120608
  Serious: Yes (Hospitalization)
  Sender: FDA-Public Use
  Company Number: CA-CELGENEUS-028-AB007-12020181

PATIENT
  Sex: Male
  Weight: 83 kg

DRUGS (9)
  1. ABRAXANE [Suspect]
     Dosage: 202 MILLIGRAM
     Route: 041
     Dates: start: 20110928
  2. FENTANYL [Concomitant]
     Indication: ABDOMINAL PAIN
     Dosage: 37 MICROGRAM
     Route: 062
     Dates: start: 20110810
  3. DILAUDID [Concomitant]
     Indication: ABDOMINAL PAIN
     Dosage: 2 MILLIGRAM
     Route: 048
     Dates: start: 20110728
  4. GEMCITABINE [Suspect]
     Dosage: 1000 MILLIGRAM
     Route: 041
     Dates: start: 20110901, end: 20110907
  5. ABRAXANE [Suspect]
     Dosage: 125 MILLIGRAM/SQ. METER
     Route: 041
     Dates: start: 20110901, end: 20110907
  6. ATENOLOL [Concomitant]
     Indication: HYPERTENSION
     Dosage: 25 MILLIGRAM
     Route: 048
     Dates: start: 20110520
  7. AMLODIPINE [Concomitant]
     Indication: HYPERTENSION
     Dosage: 5 MILLIGRAM
     Route: 048
     Dates: start: 20100326
  8. GEMCITABINE [Suspect]
     Dosage: 1620 MILLIGRAM
     Route: 041
     Dates: start: 20110928
  9. MAXERAN [Concomitant]
     Indication: NAUSEA
     Dosage: 10 MILLIGRAM
     Route: 048
     Dates: start: 20110823

REACTIONS (5)
  - DECREASED APPETITE [None]
  - FATIGUE [None]
  - DEHYDRATION [None]
  - NAUSEA [None]
  - VOMITING [None]
